FAERS Safety Report 4576324-4 (Version None)
Quarter: 2005Q1

REPORT INFORMATION
  Report Type: 
  Country: None (occurrence: None)
  Receive Date: 20050207
  Receipt Date: 20050124
  Transmission Date: 20050727
  Serious: Yes (Other)
  Sender: FDA-Public Use
  Company Number: 2005019540

PATIENT
  Sex: Male

DRUGS (1)
  1. XALATAN [Suspect]
     Indication: ILL-DEFINED DISORDER

REACTIONS (2)
  - CATARACT OPERATION [None]
  - INFLAMMATION [None]
